FAERS Safety Report 24078995 (Version 1)
Quarter: 2024Q3

REPORT INFORMATION
  Report Type: Spontaneous
  Country: US (occurrence: None)
  Receive Date: 20240711
  Receipt Date: 20240711
  Transmission Date: 20241017
  Serious: No
  Sender: US WORLDMEDS
  Company Number: US-USWM, LLC-UWM202404-000031

PATIENT
  Age: 7 Year
  Sex: Female

DRUGS (7)
  1. IWILFIN [Suspect]
     Active Substance: EFLORNITHINE HYDROCHLORIDE
     Indication: Neuroblastoma
     Dates: start: 20240416
  2. BACTRIM [Concomitant]
     Active Substance: SULFAMETHOXAZOLE\TRIMETHOPRIM
     Dosage: 200MG/5ML
     Route: 048
  3. PANTOPRAZOLE [Concomitant]
     Active Substance: PANTOPRAZOLE
  4. IMODIUM [Concomitant]
     Active Substance: LOPERAMIDE HYDROCHLORIDE
     Dosage: 1 MG/5 ML
  5. GABAPENTIN [Concomitant]
     Active Substance: GABAPENTIN
  6. LORBRENA [Concomitant]
     Active Substance: LORLATINIB
  7. POTASSIUM IODIDE [Concomitant]
     Active Substance: POTASSIUM IODIDE
     Dosage: 1/2 TAB FOR 5 DAYS (START ONE DAY PRIOR TO MIBG SCAN AND TO TAKE CONTINUOUSLY FOR 5 DAYS)

REACTIONS (1)
  - Dry mouth [Not Recovered/Not Resolved]

NARRATIVE: CASE EVENT DATE: 20240418
